FAERS Safety Report 16665695 (Version 1)
Quarter: 2019Q3

REPORT INFORMATION
  Report Type: Spontaneous
  Country: US (occurrence: US)
  Receive Date: 20190804
  Receipt Date: 20190804
  Transmission Date: 20191004
  Serious: Yes (Other)
  Sender: FDA-Public Use
  Company Number: US-ABBVIE-19S-163-2672344-00

PATIENT
  Sex: Male

DRUGS (8)
  1. DILANTIN [Suspect]
     Active Substance: PHENYTOIN
     Route: 065
  2. DILANTIN [Suspect]
     Active Substance: PHENYTOIN
     Dosage: 100 MG THEN 200 MG AND 200 MG
     Route: 065
     Dates: start: 20171010
  3. DILANTIN [Suspect]
     Active Substance: PHENYTOIN
     Dosage: 100MG-100MG-300 MG
     Route: 065
  4. FLOMAX [Concomitant]
     Active Substance: TAMSULOSIN HYDROCHLORIDE
     Indication: PROSTATOMEGALY
     Dosage: 0.4MG OR 4.0MG, THE LOWEST DOSE
  5. COZAAR [Concomitant]
     Active Substance: LOSARTAN POTASSIUM
     Indication: BLOOD PRESSURE MEASUREMENT
  6. LABETALOL [Concomitant]
     Active Substance: LABETALOL\LABETALOL HYDROCHLORIDE
     Indication: BLOOD PRESSURE MEASUREMENT
  7. DEPAKOTE [Suspect]
     Active Substance: DIVALPROEX SODIUM
     Indication: SEIZURE
     Dosage: 500MG AT NIGHT AND 500MG IN THE MORNING
     Route: 048
     Dates: start: 20171010
  8. DILANTIN [Suspect]
     Active Substance: PHENYTOIN
     Indication: SEIZURE
     Route: 065

REACTIONS (12)
  - Seizure [Recovered/Resolved]
  - Cognitive disorder [Unknown]
  - Hallucination [Recovering/Resolving]
  - Coordination abnormal [Not Recovered/Not Resolved]
  - Shunt malfunction [Not Recovered/Not Resolved]
  - Gait inability [Not Recovered/Not Resolved]
  - Food refusal [Not Recovered/Not Resolved]
  - Suicidal ideation [Not Recovered/Not Resolved]
  - Drug level decreased [Not Recovered/Not Resolved]
  - Nausea [Not Recovered/Not Resolved]
  - Somnolence [Not Recovered/Not Resolved]
  - Constipation [Not Recovered/Not Resolved]

NARRATIVE: CASE EVENT DATE: 201710
